FAERS Safety Report 18877162 (Version 1)
Quarter: 2021Q1

REPORT INFORMATION
  Report Type: Spontaneous
  Country: US (occurrence: US)
  Receive Date: 20210211
  Receipt Date: 20210211
  Transmission Date: 20210420
  Serious: Yes (Other)
  Sender: FDA-Public Use
  Company Number: US-BRISTOL-MYERS SQUIBB COMPANY-BMS-2021-012240

PATIENT
  Age: 50 Year
  Sex: Female

DRUGS (1)
  1. WARFARIN SODIUM. [Suspect]
     Active Substance: WARFARIN SODIUM
     Indication: ANTICOAGULANT THERAPY
     Dosage: UNK
     Route: 065
     Dates: start: 2011

REACTIONS (7)
  - Contusion [Unknown]
  - Peripheral swelling [Unknown]
  - International normalised ratio increased [Unknown]
  - Haematuria [Unknown]
  - Food interaction [Unknown]
  - Haemoperitoneum [Unknown]
  - Haematoma [Unknown]
